FAERS Safety Report 16146235 (Version 2)
Quarter: 2019Q2

REPORT INFORMATION
  Report Type: Spontaneous
  Country: US (occurrence: US)
  Receive Date: 20190402
  Receipt Date: 20190507
  Transmission Date: 20190711
  Serious: No
  Sender: FDA-Public Use
  Company Number: US-PFIZER INC-2019136560

PATIENT
  Age: 58 Year
  Sex: Female

DRUGS (2)
  1. XELJANZ XR [Suspect]
     Active Substance: TOFACITINIB CITRATE
     Dosage: 11 MG, 1X/DAY
     Route: 048
     Dates: start: 201902
  2. XELJANZ XR [Suspect]
     Active Substance: TOFACITINIB CITRATE
     Indication: CROHN^S DISEASE
     Dosage: 11 MG, DAILY
     Route: 048

REACTIONS (4)
  - Product use in unapproved indication [Unknown]
  - Oropharyngeal pain [Unknown]
  - Product dose omission [Unknown]
  - Malaise [Unknown]
